FAERS Safety Report 11433758 (Version 1)
Quarter: 2015Q3

REPORT INFORMATION
  Report Type: Report from Study
  Country: BR (occurrence: BR)
  Receive Date: 20150831
  Receipt Date: 20150831
  Transmission Date: 20151125
  Serious: Yes (Death, Hospitalization)
  Sender: FDA-Public Use
  Company Number: PHHY2015BR103925

PATIENT
  Age: 84 Year
  Sex: Male
  Weight: 57 kg

DRUGS (1)
  1. EXELON PATCH [Suspect]
     Active Substance: RIVASTIGMINE
     Indication: DEMENTIA ALZHEIMER^S TYPE
     Dosage: 13.3 MG, QD (PATCH 15 (CM2)
     Route: 062
     Dates: start: 2012, end: 2014

REACTIONS (3)
  - Multi-organ failure [Fatal]
  - Pneumonia [Fatal]
  - Malaise [Unknown]
